FAERS Safety Report 24100891 (Version 1)
Quarter: 2024Q3

REPORT INFORMATION
  Report Type: Spontaneous
  Country: US (occurrence: US)
  Receive Date: 20240717
  Receipt Date: 20240717
  Transmission Date: 20241017
  Serious: No
  Sender: NOVO NORDISK
  Company Number: US-NOVOPROD-1224260

PATIENT
  Sex: Female

DRUGS (1)
  1. OZEMPIC [Suspect]
     Active Substance: SEMAGLUTIDE
     Indication: Type 2 diabetes mellitus
     Dosage: 1 MG, QW
     Route: 058
     Dates: start: 202404

REACTIONS (8)
  - Abdominal distension [Not Recovered/Not Resolved]
  - Decreased appetite [Unknown]
  - Taste disorder [Not Recovered/Not Resolved]
  - Hunger [Unknown]
  - Nausea [Not Recovered/Not Resolved]
  - Vomiting [Not Recovered/Not Resolved]
  - Product label confusion [Unknown]
  - Off label use [Unknown]

NARRATIVE: CASE EVENT DATE: 20240506
